FAERS Safety Report 6931707-X (Version None)
Quarter: 2010Q3

REPORT INFORMATION
  Report Type: 
  Country: None (occurrence: None)
  Receive Date: 20100812
  Receipt Date: 20090622
  Transmission Date: 20110219
  Serious: No
  Sender: FDA-Public Use
  Company Number: 2009-00156

PATIENT
  Age: 52 Year
  Sex: Female
  Weight: 52.1637 kg

DRUGS (8)
  1. ZICAM EXTREME CONGESTION RELIEF [Suspect]
     Dosage: 3-4 YEARS AGO
  2. ECHINACEA [Concomitant]
  3. GOLD SEAL ANTISEPTIC POWDER [Concomitant]
  4. GRAPE SEED EXTRACT [Concomitant]
  5. GINSENG [Concomitant]
  6. CALCIUM [Concomitant]
  7. VITAMIN B COMPLEX CAP [Concomitant]
  8. MULTI-VITAMIN [Concomitant]

REACTIONS (1)
  - AGEUSIA [None]
